FAERS Safety Report 9148356 (Version 1)
Quarter: 2013Q1

REPORT INFORMATION
  Report Type: Spontaneous
  Country: US (occurrence: None)
  Receive Date: 20130215
  Receipt Date: 20130215
  Transmission Date: 20140127
  Serious: Yes (Death)
  Sender: FDA-Public Use
  Company Number: SYM-2013-00260

PATIENT
  Age: 40 Year
  Sex: Female

DRUGS (2)
  1. BUPROPION [Suspect]
     Indication: PRODUCT USED FOR UNKNOWN INDICATION
     Route: 048
  2. ETHANOL [Suspect]
     Indication: PRODUCT USED FOR UNKNOWN INDICATION
     Route: 048

REACTIONS (20)
  - Poisoning [None]
  - Completed suicide [None]
  - Mental status changes [None]
  - Intentional overdose [None]
  - Impaired driving ability [None]
  - Sinus tachycardia [None]
  - Blood pressure decreased [None]
  - Unresponsive to stimuli [None]
  - Grand mal convulsion [None]
  - Body temperature increased [None]
  - Pulseless electrical activity [None]
  - Cardiac arrest [None]
  - No therapeutic response [None]
  - Hepatic steatosis [None]
  - Coma [None]
  - Metabolic acidosis [None]
  - Toxicity to various agents [None]
  - Dry mouth [None]
  - Electrocardiogram QT prolonged [None]
  - Ammonia increased [None]
